FAERS Safety Report 5920175-2 (Version None)
Quarter: 2008Q4

REPORT INFORMATION
  Report Type: 
  Country: None (occurrence: None)
  Receive Date: 20081016
  Receipt Date: 20081010
  Transmission Date: 20090506
  Serious: Yes (Disabling)
  Sender: FDA-Public Use
  Company Number: US-BAYER-200825276NA

PATIENT
  Age: 46 Year
  Sex: Male

DRUGS (3)
  1. NEXAVAR [Suspect]
     Indication: HEPATIC NEOPLASM MALIGNANT
     Dosage: TOTAL DAILY DOSE: 800 MG  UNIT DOSE: 200 MG
     Route: 048
     Dates: start: 20080501, end: 20080610
  2. HIV MEDS [Concomitant]
  3. COUMADIN [Concomitant]

REACTIONS (2)
  - EPISTAXIS [None]
  - MUSCLE SPASMS [None]
